FAERS Safety Report 8169806-X (Version None)
Quarter: 2012Q1

REPORT INFORMATION
  Report Type: 
  Country: None (occurrence: None)
  Receive Date: 20120228
  Receipt Date: 20120220
  Transmission Date: 20120608
  Serious: Yes (Death)
  Sender: FDA-Public Use
  Company Number: ES-BRISTOL-MYERS SQUIBB COMPANY-16408619

PATIENT
  Sex: Female

DRUGS (1)
  1. AZACTAM [Suspect]
     Indication: NOSOCOMIAL INFECTION

REACTIONS (1)
  - DEATH [None]
